FAERS Safety Report 17432346 (Version 6)
Quarter: 2020Q3

REPORT INFORMATION
  Report Type: Spontaneous
  Country: US (occurrence: US)
  Receive Date: 20200218
  Receipt Date: 20200820
  Transmission Date: 20201102
  Serious: No
  Sender: FDA-Public Use
  Company Number: US-SA-2020SA040544

PATIENT

DRUGS (1)
  1. CAPRELSA [Suspect]
     Active Substance: VANDETANIB
     Indication: THYROID CANCER
     Dosage: 300 MG, QD
     Route: 048
     Dates: start: 20160310

REACTIONS (5)
  - Pigmentation disorder [Unknown]
  - Limb operation [Unknown]
  - Skin disorder [Unknown]
  - Chest pain [Unknown]
  - Illness [Unknown]
